FAERS Safety Report 12978636 (Version 1)
Quarter: 2016Q4

REPORT INFORMATION
  Report Type: Spontaneous
  Country: DE (occurrence: DE)
  Receive Date: 20161128
  Receipt Date: 20161128
  Transmission Date: 20170207
  Serious: Yes (Hospitalization)
  Sender: FDA-Public Use
  Company Number: DE-PFIZER INC-2016541754

PATIENT
  Age: 68 Year
  Sex: Female

DRUGS (12)
  1. STANGYL [Suspect]
     Active Substance: TRIMIPRAMINE MALEATE
     Dosage: 100 MG, DAILY
     Route: 048
     Dates: end: 20160411
  2. OMEPRAZOL [Concomitant]
     Active Substance: OMEPRAZOLE
     Indication: GASTROINTESTINAL DISORDER
     Dosage: 20 MG, DAILY
     Route: 048
  3. L-THYROXIN [Concomitant]
     Active Substance: LEVOTHYROXINE SODIUM
     Indication: THYROID DISORDER
     Dosage: 50 UG, DAILY
     Route: 048
  4. ERGENYL [Suspect]
     Active Substance: VALPROIC ACID
     Dosage: 1250 MG, DAILY
     Route: 048
  5. ZOPICLON [Suspect]
     Active Substance: ZOPICLONE
     Dosage: 7.5 MG, DAILY
     Route: 048
  6. LEPONEX [Suspect]
     Active Substance: CLOZAPINE
     Dosage: 200 MG, DAILY
     Route: 048
  7. CONCOR [Suspect]
     Active Substance: BISOPROLOL FUMARATE
     Dosage: 5 MG, DAILY
     Route: 048
  8. SIMVABETA [Concomitant]
     Active Substance: SIMVASTATIN
     Indication: LIPID METABOLISM DISORDER
     Dosage: 40 MG, DAILY
     Route: 048
  9. TOLTERODINE TARTRATE. [Suspect]
     Active Substance: TOLTERODINE TARTRATE
     Dosage: 2 MG, DAILY
     Route: 048
  10. DIPIPERON [Suspect]
     Active Substance: PIPAMPERONE
     Dosage: 40 MG, DAILY
     Route: 048
  11. MICTONORM [Suspect]
     Active Substance: PROPIVERINE HYDROCHLORIDE
     Dosage: 30 MG, DAILY
     Route: 048
  12. ARCOXIA [Concomitant]
     Active Substance: ETORICOXIB
     Indication: PAIN
     Dosage: 30 MG, DAILY
     Route: 048

REACTIONS (1)
  - Fall [Unknown]

NARRATIVE: CASE EVENT DATE: 20160411
